FAERS Safety Report 13398060 (Version 1)
Quarter: 2017Q2

REPORT INFORMATION
  Report Type: Spontaneous
  Country: US (occurrence: US)
  Receive Date: 20170403
  Receipt Date: 20170403
  Transmission Date: 20170830
  Serious: Yes (Other)
  Sender: FDA-Public Use
  Company Number: US-AMGEN-USASP2017047452

PATIENT
  Age: 64 Year
  Sex: Female

DRUGS (1)
  1. ENBREL [Suspect]
     Active Substance: ETANERCEPT
     Indication: RHEUMATOID ARTHRITIS
     Dosage: 50 MG, QWK
     Route: 058
     Dates: start: 20160505

REACTIONS (5)
  - Feeling abnormal [Unknown]
  - Viral upper respiratory tract infection [Unknown]
  - Continuous positive airway pressure [Unknown]
  - Nasal dryness [Unknown]
  - Dry throat [Unknown]

NARRATIVE: CASE EVENT DATE: 201703
